FAERS Safety Report 12501762 (Version 1)
Quarter: 2016Q2

REPORT INFORMATION
  Report Type: Spontaneous
  Country: US (occurrence: US)
  Receive Date: 20160627
  Receipt Date: 20160627
  Transmission Date: 20160815
  Serious: No
  Sender: FDA-Public Use
  Company Number: US-BAYER-2016-125417

PATIENT
  Age: 42 Year
  Sex: Female

DRUGS (1)
  1. GADAVIST [Suspect]
     Active Substance: GADOBUTROL
     Indication: COMPUTERISED TOMOGRAM
     Dosage: UNK UNK -  13CC, ONCE
     Route: 042
     Dates: start: 20160623, end: 20160623

REACTIONS (3)
  - Nausea [Unknown]
  - Pallor [Unknown]
  - Chills [Unknown]

NARRATIVE: CASE EVENT DATE: 20160623
